FAERS Safety Report 24905803 (Version 1)
Quarter: 2025Q1

REPORT INFORMATION
  Report Type: Spontaneous
  Country: US (occurrence: None)
  Receive Date: 20250128
  Receipt Date: 20250128
  Transmission Date: 20250409
  Serious: Yes (Death)
  Sender: FDA-CTU
  Company Number: None

PATIENT
  Sex: Female

DRUGS (16)
  1. PRALUENT [Suspect]
     Active Substance: ALIROCUMAB
  2. ALLOPURINOL [Suspect]
     Active Substance: ALLOPURINOL
  3. AMLODIPINE [Suspect]
     Active Substance: AMLODIPINE BESYLATE
  4. ASPIRIN [Suspect]
     Active Substance: ASPIRIN
  5. GEMFIBROZIL [Suspect]
     Active Substance: GEMFIBROZIL
  6. HUMALOG KWIKPEN [Suspect]
     Active Substance: INSULIN LISPRO
  7. HYGROTON [Suspect]
     Active Substance: CHLORTHALIDONE
  8. LASIX [Suspect]
     Active Substance: FUROSEMIDE
  9. LEVEMIR [Suspect]
     Active Substance: INSULIN DETEMIR
  10. ZETIA [Suspect]
     Active Substance: EZETIMIBE
  11. DOXAZOSIN [Suspect]
     Active Substance: DOXAZOSIN MESYLATE
  12. AMIODARONE [Suspect]
     Active Substance: AMIODARONE
  13. ELIQUIS [Suspect]
     Active Substance: APIXABAN
  14. HYDRALAZINE [Suspect]
     Active Substance: HYDRALAZINE HYDROCHLORIDE
  15. METOPROLOL SUCCINATE [Suspect]
     Active Substance: METOPROLOL SUCCINATE
  16. POTASSIUM [Suspect]
     Active Substance: POTASSIUM

REACTIONS (1)
  - Death [None]
